FAERS Safety Report 7197933-2 (Version None)
Quarter: 2010Q4

REPORT INFORMATION
  Report Type: 
  Country: None (occurrence: None)
  Receive Date: 20101227
  Receipt Date: 20101217
  Transmission Date: 20110411
  Serious: Yes (Death, Other)
  Sender: FDA-Public Use
  Company Number: US-ROCHE-638251

PATIENT
  Sex: Female

DRUGS (4)
  1. PEGINTERFERON ALFA-2A [Suspect]
     Route: 065
     Dates: start: 20090101
  2. RIBAVIRIN [Suspect]
     Route: 065
     Dates: start: 20090101, end: 20090512
  3. NEUPOGEN [Suspect]
     Route: 065
  4. PROCRIT [Suspect]
     Route: 065

REACTIONS (2)
  - ARTERIAL RUPTURE [None]
  - PLATELET COUNT DECREASED [None]
